FAERS Safety Report 9381025 (Version 2)
Quarter: 2013Q3

REPORT INFORMATION
  Report Type: Report from Study
  Country: US (occurrence: US)
  Receive Date: 20130703
  Receipt Date: 20130808
  Transmission Date: 20140515
  Serious: Yes (Death)
  Sender: FDA-Public Use
  Company Number: US-ALEXION PHARMACEUTICALS INC.-A201301490

PATIENT
  Sex: Female
  Weight: 53 kg

DRUGS (5)
  1. SOLIRIS [Suspect]
     Indication: PAROXYSMAL NOCTURNAL HAEMOGLOBINURIA
     Dosage: UNK
     Route: 042
     Dates: start: 201112, end: 201206
  2. SOLIRIS [Suspect]
     Dosage: UNK
     Route: 042
     Dates: start: 20120814, end: 20120913
  3. ARANESP [Concomitant]
     Indication: MYELODYSPLASTIC SYNDROME
     Dosage: 300 MCG, QW
  4. VITAMIN B12 [Concomitant]
     Dosage: 1000 MCG, QM
  5. PREDNISONE [Concomitant]
     Dosage: 15 MG, QD

REACTIONS (1)
  - Respiratory failure [Fatal]
